FAERS Safety Report 7334355-5 (Version None)
Quarter: 2011Q1

REPORT INFORMATION
  Report Type: 
  Country: None (occurrence: None)
  Receive Date: 20110307
  Receipt Date: 20101209
  Transmission Date: 20110831
  Serious: No
  Sender: FDA-Public Use
  Company Number: US-KINGPHARMUSA00001-K201001488

PATIENT
  Sex: Male
  Weight: 58.05 kg

DRUGS (1)
  1. EMBEDA [Suspect]
     Indication: PAIN
     Dosage: 60 MG, BID
     Route: 048
     Dates: start: 20101208

REACTIONS (2)
  - SWELLING [None]
  - HEADACHE [None]
